FAERS Safety Report 5001693-0 (Version None)
Quarter: 2006Q2

REPORT INFORMATION
  Report Type: 
  Country: None (occurrence: None)
  Receive Date: 20060515
  Receipt Date: 20060503
  Transmission Date: 20061013
  Serious: Yes (Hospitalization)
  Sender: FDA-Public Use
  Company Number: 2006CG00804

PATIENT
  Age: 62 Year
  Sex: Female

DRUGS (3)
  1. ENTOCORT [Suspect]
     Indication: DIVERTICULITIS
     Route: 048
     Dates: start: 20060109, end: 20060301
  2. LEVOTHYROX [Concomitant]
     Route: 048
     Dates: start: 20010101
  3. STILNOX [Concomitant]
     Route: 048
     Dates: start: 20050101

REACTIONS (1)
  - CYTOLYTIC HEPATITIS [None]
